FAERS Safety Report 5252751-7 (Version None)
Quarter: 2007Q1

REPORT INFORMATION
  Report Type: 
  Country: None (occurrence: None)
  Receive Date: 20070301
  Receipt Date: 20061127
  Transmission Date: 20070707
  Serious: No
  Sender: FDA-Public Use
  Company Number: US-GLAXOSMITHKLINE-A0628680A

PATIENT
  Sex: Male

DRUGS (6)
  1. LAMICTAL [Suspect]
     Indication: DEPRESSION
     Dosage: 100MG PER DAY
     Route: 048
  2. ATENOLOL [Concomitant]
  3. PRILOSEC [Concomitant]
  4. SEASONALE [Concomitant]
  5. XANAX [Concomitant]
  6. AMBIEN [Concomitant]

REACTIONS (1)
  - PALPITATIONS [None]
